FAERS Safety Report 26063995 (Version 1)
Quarter: 2025Q4

REPORT INFORMATION
  Report Type: Report from Study
  Country: US (occurrence: US)
  Receive Date: 20251119
  Receipt Date: 20251119
  Transmission Date: 20260118
  Serious: Yes (Hospitalization)
  Sender: JOHNSON AND JOHNSON
  Company Number: US-JNJFOC-20251163023

PATIENT
  Age: 5 Decade
  Sex: Female

DRUGS (6)
  1. SPRAVATO [Suspect]
     Active Substance: ESKETAMINE
     Indication: Depression
     Dosage: ?28 MG, 1 TOTAL DOSES?
     Route: 045
     Dates: start: 20240909, end: 20240909
  2. SPRAVATO [Suspect]
     Active Substance: ESKETAMINE
     Dosage: ?84 MG, 1 TOTAL DOSES?
     Route: 045
     Dates: start: 20240911, end: 20240911
  3. SPRAVATO [Suspect]
     Active Substance: ESKETAMINE
     Dosage: ?56 MG, 2 TOTAL DOSES?
     Route: 045
     Dates: start: 20240916, end: 20240918
  4. SPRAVATO [Suspect]
     Active Substance: ESKETAMINE
     Dosage: ?84 MG, 16 TOTAL DOSES?
     Route: 045
     Dates: start: 20240923, end: 20251105
  5. SPRAVATO [Suspect]
     Active Substance: ESKETAMINE
     Dosage: ?56 MG, 2 TOTAL DOSES?
     Route: 045
     Dates: start: 20251108, end: 20251110
  6. SPRAVATO [Suspect]
     Active Substance: ESKETAMINE
     Dosage: ?84 MG, 2 TOTAL DOSES?
     Route: 045
     Dates: start: 20251113, end: 20251117

REACTIONS (1)
  - Hospitalisation [Unknown]
